FAERS Safety Report 23990081 (Version 1)
Quarter: 2024Q2

REPORT INFORMATION
  Report Type: Spontaneous
  Country: US (occurrence: US)
  Receive Date: 20240619
  Receipt Date: 20240619
  Transmission Date: 20240716
  Serious: No
  Sender: FDA-Public Use
  Company Number: US-SA-SAC20240612000545

PATIENT

DRUGS (1)
  1. XENPOZYME [Suspect]
     Active Substance: OLIPUDASE ALFA-RPCP
     Dosage: UNK
     Route: 065

REACTIONS (2)
  - Aspartate aminotransferase increased [Unknown]
  - Alanine aminotransferase increased [Unknown]

NARRATIVE: CASE EVENT DATE: 20240610
